FAERS Safety Report 23185738 (Version 1)
Quarter: 2023Q4

REPORT INFORMATION
  Report Type: Spontaneous
  Country: CN (occurrence: CN)
  Receive Date: 20231115
  Receipt Date: 20231115
  Transmission Date: 20240110
  Serious: Yes (Other)
  Sender: FDA-Public Use
  Company Number: None

PATIENT
  Age: 61 Year
  Sex: Male
  Weight: 60 kg

DRUGS (7)
  1. MANNITOL [Suspect]
     Active Substance: MANNITOL
     Indication: Diuretic therapy
     Dosage: 250 MILLILITER (ML), TWO TIME IN ONE DAY
     Route: 041
     Dates: start: 20231103, end: 20231106
  2. MANNITOL [Suspect]
     Active Substance: MANNITOL
     Indication: Oedema
  3. SODIUM CHLORIDE [Suspect]
     Active Substance: SODIUM CHLORIDE
     Indication: Medication dilution
     Dosage: 2 ML DILUTED WITH 5 MG OF DEXAMETHASONE SODIUM PHOSPHATE
     Route: 042
     Dates: start: 20231106
  4. DEXAMETHASONE SODIUM PHOSPHATE [Suspect]
     Active Substance: DEXAMETHASONE SODIUM PHOSPHATE
     Dosage: 5 MG USED TO DILUTE 2 ML OF NORMAL SALINE  (ST)
     Route: 042
     Dates: start: 20231106
  5. PROMETHAZINE HYDROCHLORIDE [Suspect]
     Active Substance: PROMETHAZINE HYDROCHLORIDE
     Dosage: 25 MILLIGRAM (MG), UNSPECIFIED FREQUENCY
     Route: 030
     Dates: start: 20231106
  6. CALCIUM CHLORIDE\POTASSIUM CHLORIDE\SODIUM CHLORIDE [Suspect]
     Active Substance: CALCIUM CHLORIDE\POTASSIUM CHLORIDE\SODIUM CHLORIDE
     Dosage: 500 MILLILITER (ML) (ST)
     Route: 065
     Dates: start: 20231106
  7. OXYGEN [Suspect]
     Active Substance: OXYGEN
     Dosage: 3 LITER/MIN (VIA NASAL CATHETER)
     Dates: start: 20231106

REACTIONS (4)
  - Discomfort [Recovered/Resolved]
  - Chills [Recovering/Resolving]
  - Nausea [Recovering/Resolving]
  - Body temperature increased [Recovering/Resolving]

NARRATIVE: CASE EVENT DATE: 20231106
